FAERS Safety Report 25250718 (Version 1)
Quarter: 2025Q2

REPORT INFORMATION
  Report Type: Spontaneous
  Country: CA (occurrence: CA)
  Receive Date: 20250429
  Receipt Date: 20250429
  Transmission Date: 20250717
  Serious: Yes (Hospitalization, Other)
  Sender: AUROBINDO
  Company Number: CA-AUROBINDO-AUR-APL-2024-001138

PATIENT
  Age: 32 Year
  Sex: Female

DRUGS (2)
  1. CINACALCET [Suspect]
     Active Substance: CINACALCET
     Indication: Product used for unknown indication
     Route: 064
  2. CALCITONIN [Suspect]
     Active Substance: CALCITONIN
     Indication: Product used for unknown indication
     Route: 064

REACTIONS (3)
  - Hypoparathyroidism [Recovered/Resolved]
  - Premature baby [Recovered/Resolved]
  - Foetal exposure during pregnancy [Recovered/Resolved]
